FAERS Safety Report 14673787 (Version 1)
Quarter: 2018Q1

REPORT INFORMATION
  Report Type: Spontaneous
  Country: US (occurrence: US)
  Receive Date: 20180323
  Receipt Date: 20180323
  Transmission Date: 20180509
  Serious: Yes (Death, Other)
  Sender: FDA-Public Use
  Company Number: US-CIPLA LTD.-2014US00072

PATIENT

DRUGS (3)
  1. CARBOPLATIN. [Suspect]
     Active Substance: CARBOPLATIN
     Indication: BLADDER CANCER
     Dosage: AREA UNDER THE CURVE 5 OVER 15 MINUTES ADMINISTERED ON DAY 1
  2. HUMAN ALBUMIN/PACLITAXEL [Suspect]
     Active Substance: PACLITAXEL
     Indication: BLADDER CANCER
     Dosage: THE DOSE ADJUSTED TO EVERY 3 WEEKS AT THE DOSE OF 260 MG/M2 OVER 30 MINUTES ON DAY 1 OF EACH CYCLE
  3. GEMCITABINE [Suspect]
     Active Substance: GEMCITABINE\GEMCITABINE HYDROCHLORIDE
     Indication: BLADDER CANCER
     Dosage: 800 MG/M2, OVER 30 MINUTES ON DAYS 1 AND 8.

REACTIONS (4)
  - Febrile neutropenia [Unknown]
  - Thrombocytopenia [Unknown]
  - Respiratory failure [Unknown]
  - Haemorrhage intracranial [Fatal]
